FAERS Safety Report 8260385-5 (Version None)
Quarter: 2012Q2

REPORT INFORMATION
  Report Type: 
  Country: None (occurrence: None)
  Receive Date: 20120404
  Receipt Date: 20120327
  Transmission Date: 20120825
  Serious: Yes (Hospitalization)
  Sender: FDA-Public Use
  Company Number: FR-FRI-1000029582

PATIENT
  Sex: Female

DRUGS (10)
  1. PREVISCAN [Suspect]
     Indication: ATRIAL FIBRILLATION
     Dosage: 1 DF
     Route: 048
  2. PROPRANOLOL [Concomitant]
     Dosage: 1 DF
     Route: 048
  3. ACETAMINOPHEN [Concomitant]
     Route: 048
  4. LASIX [Concomitant]
     Dosage: 20 MG / 2 ML
  5. CITALOPRAM HYDROBROMIDE [Suspect]
     Dosage: 1 DF
     Route: 048
  6. HEPARIN [Concomitant]
     Dates: start: 20120216
  7. ASPIRIN [Suspect]
     Dosage: 1 DF
     Route: 048
  8. ACUPAN [Concomitant]
     Route: 042
     Dates: end: 20120222
  9. SIMVASTATIN [Concomitant]
     Dosage: 20 MG
     Route: 048
  10. DURAGESIC-100 [Concomitant]
     Dosage: 12 MICROG/H (2,1 MG/ 5,25 CM2)
     Route: 050
     Dates: end: 20120222

REACTIONS (2)
  - HAEMATOMA [None]
  - INTERNATIONAL NORMALISED RATIO INCREASED [None]
